FAERS Safety Report 23793519 (Version 9)
Quarter: 2025Q2

REPORT INFORMATION
  Report Type: Spontaneous
  Country: US (occurrence: US)
  Receive Date: 20240429
  Receipt Date: 20250508
  Transmission Date: 20250716
  Serious: No
  Sender: JOHNSON AND JOHNSON
  Company Number: US-JNJFOC-20240475971

PATIENT
  Age: 40 Year

DRUGS (14)
  1. SPRAVATO [Suspect]
     Active Substance: ESKETAMINE
     Indication: Major depression
     Route: 045
  2. SPRAVATO [Suspect]
     Active Substance: ESKETAMINE
     Indication: Depression
     Route: 045
  3. SPRAVATO [Suspect]
     Active Substance: ESKETAMINE
     Indication: Anxiety
     Route: 045
  4. SPRAVATO [Suspect]
     Active Substance: ESKETAMINE
     Route: 045
  5. SPRAVATO [Suspect]
     Active Substance: ESKETAMINE
     Route: 045
  6. SPRAVATO [Suspect]
     Active Substance: ESKETAMINE
     Route: 045
  7. SPRAVATO [Suspect]
     Active Substance: ESKETAMINE
     Route: 045
  8. SPRAVATO [Suspect]
     Active Substance: ESKETAMINE
     Route: 045
  9. SPRAVATO [Suspect]
     Active Substance: ESKETAMINE
     Route: 045
  10. SPRAVATO [Suspect]
     Active Substance: ESKETAMINE
     Route: 045
  11. SPRAVATO [Suspect]
     Active Substance: ESKETAMINE
     Route: 045
  12. SPRAVATO [Suspect]
     Active Substance: ESKETAMINE
     Route: 045
  13. SPRAVATO [Suspect]
     Active Substance: ESKETAMINE
     Route: 045
  14. SPRAVATO [Suspect]
     Active Substance: ESKETAMINE
     Route: 045

REACTIONS (11)
  - Product complaint [Unknown]
  - Liquid product physical issue [Unknown]
  - Incorrect dose administered [Unknown]
  - Incorrect dose administered by device [Unknown]
  - Device leakage [Unknown]
  - Device malfunction [Unknown]
  - Product quality issue [Unknown]
  - Product dose omission issue [Unknown]
  - Product complaint [Unknown]
  - Liquid product physical issue [Unknown]
  - Incorrect dose administered [Unknown]

NARRATIVE: CASE EVENT DATE: 20240424
